FAERS Safety Report 21320061 (Version 2)
Quarter: 2022Q4

REPORT INFORMATION
  Report Type: Report from Study
  Country: US (occurrence: US)
  Receive Date: 20220911
  Receipt Date: 20221007
  Transmission Date: 20230112
  Serious: No
  Sender: FDA-Public Use
  Company Number: US-SA-SAC20220906000149

PATIENT
  Age: 68 Year
  Sex: Female

DRUGS (12)
  1. TERIFLUNOMIDE [Suspect]
     Active Substance: TERIFLUNOMIDE
     Dosage: UNK
     Route: 048
     Dates: start: 2022
  2. CHOLECALCIFEROL [Concomitant]
     Active Substance: CHOLECALCIFEROL
  3. FISH OIL [Concomitant]
     Active Substance: FISH OIL
  4. TYLENOL [Concomitant]
     Active Substance: ACETAMINOPHEN
  5. ADVIL [Concomitant]
     Active Substance: IBUPROFEN
  6. ALEVE [Concomitant]
     Active Substance: NAPROXEN SODIUM
  7. BACLOFEN [Concomitant]
     Active Substance: BACLOFEN
  8. METOPROLOL [Concomitant]
     Active Substance: METOPROLOL
  9. LISINOPRIL [Concomitant]
     Active Substance: LISINOPRIL
  10. GEMTESA [Concomitant]
     Active Substance: VIBEGRON
  11. LEVOTHYROXINE [Concomitant]
     Active Substance: LEVOTHYROXINE
  12. I CAPS [Concomitant]

REACTIONS (1)
  - Hepatic enzyme increased [Recovering/Resolving]

NARRATIVE: CASE EVENT DATE: 20220701
